FAERS Safety Report 13130415 (Version 1)
Quarter: 2017Q1

REPORT INFORMATION
  Report Type: Spontaneous
  Country: CN (occurrence: CN)
  Receive Date: 20170119
  Receipt Date: 20170119
  Transmission Date: 20170428
  Serious: Yes (Other)
  Sender: FDA-Public Use
  Company Number: CN-009507513-1701CHN006607

PATIENT
  Age: 67 Year
  Sex: Male
  Weight: 56 kg

DRUGS (1)
  1. TIENAM [Suspect]
     Active Substance: CILASTATIN SODIUM\IMIPENEM
     Indication: DRUG HYPERSENSITIVITY
     Dosage: 0.5 G, TID
     Route: 041
     Dates: start: 20160730, end: 20160802

REACTIONS (1)
  - Parosmia [Recovering/Resolving]

NARRATIVE: CASE EVENT DATE: 20160802
